FAERS Safety Report 6925218-5 (Version None)
Quarter: 2010Q3

REPORT INFORMATION
  Report Type: 
  Country: None (occurrence: None)
  Receive Date: 20100810
  Receipt Date: 20100802
  Transmission Date: 20110219
  Serious: Yes (Other)
  Sender: FDA-Public Use
  Company Number: 016502

PATIENT
  Sex: Female
  Weight: 10.3 kg

DRUGS (5)
  1. KEPPRA [Suspect]
     Indication: CONVULSION
     Dosage: (1 ML QD, CONCENTRATION: 100MG/ML. SUSPENSION IN GASTRIC STOMA. TAKEN IN THE EVENING), (300 MG, 1 IN
     Dates: start: 20100728, end: 20100728
  2. KEPPRA [Suspect]
     Indication: CONVULSION
     Dosage: (1 ML QD, CONCENTRATION: 100MG/ML. SUSPENSION IN GASTRIC STOMA. TAKEN IN THE EVENING), (300 MG, 1 IN
     Dates: start: 20100729, end: 20100729
  3. KEPPRA [Suspect]
     Indication: CONVULSION
     Dosage: (1 ML QD, CONCENTRATION: 100MG/ML. SUSPENSION IN GASTRIC STOMA. TAKEN IN THE EVENING), (300 MG, 1 IN
     Dates: start: 20100730
  4. MIDAZOLAM HCL [Concomitant]
  5. NOVORAPID [Concomitant]

REACTIONS (2)
  - BLOOD GLUCOSE INCREASED [None]
  - UNEVALUABLE EVENT [None]
